FAERS Safety Report 6414982-X (Version None)
Quarter: 2009Q4

REPORT INFORMATION
  Report Type: 
  Country: None (occurrence: None)
  Receive Date: 20091026
  Receipt Date: 20090226
  Transmission Date: 20100525
  Serious: No
  Sender: FDA-Public Use
  Company Number: US-ABBOTT-09P-163-0559970-00

PATIENT
  Sex: Female
  Weight: 63.56 kg

DRUGS (6)
  1. LUPRON DEPOT [Suspect]
     Indication: ENDOMETRIOSIS
     Dates: start: 20070101
  2. ADBACK THERAPY [Suspect]
     Indication: ENDOMETRIOSIS
     Dates: start: 20070101
  3. PAXIL [Concomitant]
     Indication: ANXIETY
  4. WELLBUTRIN [Concomitant]
     Indication: DEPRESSION
  5. OVCON-35 [Concomitant]
     Indication: CONTRACEPTION
  6. ALBUTEROL [Concomitant]
     Indication: ASTHMA
     Route: 055

REACTIONS (1)
  - HEADACHE [None]
